FAERS Safety Report 9071506 (Version 1)
Quarter: 2013Q1

REPORT INFORMATION
  Report Type: Spontaneous
  Country: US (occurrence: US)
  Receive Date: 20130129
  Receipt Date: 20130129
  Transmission Date: 20140127
  Serious: Yes (Hospitalization)
  Sender: FDA-Public Use
  Company Number: US-JNJFOC-20130111209

PATIENT
  Sex: Female
  Weight: 163 kg

DRUGS (3)
  1. REMICADE [Suspect]
     Indication: COLITIS ULCERATIVE
     Route: 042
     Dates: start: 2010
  2. COLAZAL [Concomitant]
     Indication: COLITIS
     Route: 065
  3. ATENOLOL [Concomitant]
     Indication: PALPITATIONS
     Route: 065
     Dates: start: 1998

REACTIONS (4)
  - Menorrhagia [Recovered/Resolved]
  - Blood triglycerides increased [Recovered/Resolved]
  - Hypoaesthesia [Not Recovered/Not Resolved]
  - Paraesthesia [Not Recovered/Not Resolved]
